FAERS Safety Report 10112210 (Version 2)
Quarter: 2014Q3

REPORT INFORMATION
  Report Type: Spontaneous
  Country: GB (occurrence: GB)
  Receive Date: 20140425
  Receipt Date: 20140815
  Transmission Date: 20150326
  Serious: Yes (Hospitalization, Other)
  Sender: FDA-Public Use
  Company Number: GB-VERTEX PHARMACEUTICALS INC-2014-002074

PATIENT
  Age: 51 Year
  Sex: Male

DRUGS (6)
  1. INCIVO [Suspect]
     Active Substance: TELAPREVIR
     Indication: HEPATITIS C
     Dosage: 750 MG, UNK
     Route: 048
     Dates: start: 20140314, end: 201406
  2. DARUNAVIR [Concomitant]
     Active Substance: DARUNAVIR
     Indication: HIV INFECTION
     Dosage: 800 MG, UNK
     Route: 065
     Dates: start: 20110322
  3. RITONAVIR [Concomitant]
     Active Substance: RITONAVIR
     Indication: HIV INFECTION
     Dosage: 100 MG, UNK
     Route: 065
     Dates: start: 20110322
  4. RIBAVIRIN. [Concomitant]
     Active Substance: RIBAVIRIN
     Indication: HEPATITIS C
     Dosage: 800 MG, UNK
     Route: 065
     Dates: start: 20140312
  5. RALTEGRAVIR [Concomitant]
     Active Substance: RALTEGRAVIR
     Indication: HIV INFECTION
     Dosage: UNK
     Route: 065
     Dates: start: 20140227
  6. INTERFERON NOS [Concomitant]
     Active Substance: INTERFERON
     Indication: HEPATITIS C
     Dosage: 80 MG, UNK
     Route: 065
     Dates: start: 20140312

REACTIONS (2)
  - Rash generalised [Recovered/Resolved]
  - Off label use [Unknown]

NARRATIVE: CASE EVENT DATE: 201404
